FAERS Safety Report 6089998-6 (Version None)
Quarter: 2009Q1

REPORT INFORMATION
  Report Type: 
  Country: None (occurrence: None)
  Receive Date: 20090224
  Receipt Date: 20081201
  Transmission Date: 20090719
  Serious: No
  Sender: FDA-Public Use
  Company Number: US-ABBOTT-08P-163-0490349-00

PATIENT
  Sex: Female
  Weight: 74.91 kg

DRUGS (6)
  1. SIMCOR [Suspect]
     Indication: BLOOD CHOLESTEROL INCREASED
     Dosage: 550/20MG, 1 IN 1 DAY
     Dates: start: 20081122
  2. ASPIRIN [Concomitant]
     Indication: DRUG USE FOR UNKNOWN INDICATION
  3. LORAZEPAM [Concomitant]
     Indication: PANIC REACTION
     Dosage: 1/2 TAB BID
  4. LORAZEPAM [Concomitant]
     Indication: ANXIETY
  5. CYMBALTA [Concomitant]
     Indication: ANXIETY
  6. METFORMIN [Concomitant]
     Indication: DIABETES MELLITUS

REACTIONS (2)
  - BURNING SENSATION [None]
  - FLUSHING [None]
